FAERS Safety Report 25803466 (Version 3)
Quarter: 2025Q4

REPORT INFORMATION
  Report Type: Spontaneous
  Country: JP (occurrence: JP)
  Receive Date: 20250915
  Receipt Date: 20251029
  Transmission Date: 20260118
  Serious: Yes (Death, Life-Threatening, Hospitalization, Other)
  Sender: MERCK SHARP & DOHME LLC
  Company Number: JP-009507513-2328809

PATIENT
  Age: 83 Year
  Sex: Male
  Weight: 61 kg

DRUGS (1)
  1. KEYTRUDA [Suspect]
     Active Substance: PEMBROLIZUMAB
     Indication: PD-L1 positive cancer
     Dosage: 200 MG Q3W
     Route: 041
     Dates: start: 20250729, end: 20250729

REACTIONS (10)
  - General physical health deterioration [Fatal]
  - Pneumonia [Unknown]
  - Hepatic function abnormal [Recovering/Resolving]
  - Inflammation [Unknown]
  - Generalised oedema [Recovering/Resolving]
  - Blood albumin decreased [Unknown]
  - Capillary leak syndrome [Not Recovered/Not Resolved]
  - Infusion related reaction [Recovering/Resolving]
  - Platelet count decreased [Not Recovered/Not Resolved]
  - Malignant neoplasm progression [Fatal]

NARRATIVE: CASE EVENT DATE: 20250101
